FAERS Safety Report 9705752 (Version 3)
Quarter: 2015Q2

REPORT INFORMATION
  Report Type: Report from Study
  Country: US (occurrence: US)
  Receive Date: 20131122
  Receipt Date: 20150603
  Transmission Date: 20150821
  Serious: Yes (Life-Threatening, Hospitalization, Disabling, Other)
  Sender: FDA-Public Use
  Company Number: US-ABBVIE-13P-163-1170042-00

PATIENT
  Sex: Female
  Weight: 71.73 kg

DRUGS (10)
  1. METHOTREXATE [Concomitant]
     Active Substance: METHOTREXATE
     Indication: RHEUMATOID ARTHRITIS
  2. METOPROLOL [Concomitant]
     Active Substance: METOPROLOL
     Indication: HYPERTENSION
  3. FOLIC ACID. [Concomitant]
     Active Substance: FOLIC ACID
     Indication: PRODUCT USED FOR UNKNOWN INDICATION
  4. PLAQUENIL [Concomitant]
     Active Substance: HYDROXYCHLOROQUINE SULFATE
     Indication: RHEUMATOID ARTHRITIS
  5. VESICARE [Concomitant]
     Active Substance: SOLIFENACIN SUCCINATE
     Indication: VULVOVAGINAL DRYNESS
  6. METOPROLOL [Concomitant]
     Active Substance: METOPROLOL
     Indication: ARRHYTHMIA
  7. HUMIRA [Suspect]
     Active Substance: ADALIMUMAB
     Indication: RHEUMATOID ARTHRITIS
     Route: 065
  8. OMEPRAZOLE. [Concomitant]
     Active Substance: OMEPRAZOLE
     Indication: GASTROOESOPHAGEAL REFLUX DISEASE
  9. HUMIRA [Suspect]
     Active Substance: ADALIMUMAB
     Route: 065
     Dates: start: 20150322
  10. DIAZEPAM. [Concomitant]
     Active Substance: DIAZEPAM
     Indication: ANXIETY

REACTIONS (16)
  - Cardiac arrest [Recovered/Resolved]
  - Amnesia [Not Recovered/Not Resolved]
  - Musculoskeletal pain [Recovering/Resolving]
  - Muscle rupture [Recovered/Resolved]
  - Seizure [Recovered/Resolved]
  - Weight decreased [Not Recovered/Not Resolved]
  - Back pain [Recovering/Resolving]
  - Ligament rupture [Recovered/Resolved]
  - Tendon rupture [Recovered/Resolved]
  - Road traffic accident [Recovered/Resolved]
  - Joint injury [Recovered/Resolved]
  - Musculoskeletal stiffness [Unknown]
  - Neck pain [Recovering/Resolving]
  - Muscle spasms [Not Recovered/Not Resolved]
  - Headache [Recovering/Resolving]
  - Spinal disorder [Recovered/Resolved]

NARRATIVE: CASE EVENT DATE: 2012
